FAERS Safety Report 5964573-X (Version None)
Quarter: 2008Q4

REPORT INFORMATION
  Report Type: 
  Country: None (occurrence: None)
  Receive Date: 20081119
  Receipt Date: 20081104
  Transmission Date: 20090506
  Serious: Yes (Life-Threatening)
  Sender: FDA-Public Use
  Company Number: 2008S1019864

PATIENT
  Age: 45 Year
  Sex: Female
  Weight: 92.1 kg

DRUGS (6)
  1. TAMOXIFEN CITRATE [Suspect]
     Indication: BREAST CANCER
     Dosage: 20 MG; ORAL
     Route: 048
     Dates: start: 20081009, end: 20081015
  2. BENDROPLUMETHIAZIDE [Concomitant]
  3. ACETAMINOPHEN W/ CODEINE [Concomitant]
  4. EXEMESTANE [Concomitant]
  5. NAPROXEN [Concomitant]
  6. TRIPTAFEN [Concomitant]

REACTIONS (1)
  - ELECTROCARDIOGRAM QT PROLONGED [None]
